FAERS Safety Report 17917622 (Version 1)
Quarter: 2020Q2

REPORT INFORMATION
  Report Type: Spontaneous
  Country: US (occurrence: US)
  Receive Date: 20200619
  Receipt Date: 20200619
  Transmission Date: 20200714
  Serious: Yes (Hospitalization)
  Sender: FDA-Public Use
  Company Number: US-CADILA HEALTHCARE LIMITED-US-ZYDUS-051975

PATIENT

DRUGS (1)
  1. OXYCODONE HYDROCHLORIDE TABLET [Suspect]
     Active Substance: OXYCODONE HYDROCHLORIDE
     Indication: BACK PAIN
     Dosage: 24 DOSAGE FORM
     Route: 048

REACTIONS (9)
  - Acute respiratory failure [Recovering/Resolving]
  - Hypotension [Recovering/Resolving]
  - Myelopathy [Recovering/Resolving]
  - Shock [Recovering/Resolving]
  - Myelitis transverse [Recovering/Resolving]
  - Unresponsive to stimuli [Recovering/Resolving]
  - Multiple organ dysfunction syndrome [Recovering/Resolving]
  - Accidental overdose [Recovering/Resolving]
  - Ischaemia [Recovering/Resolving]
